FAERS Safety Report 5746401-0 (Version None)
Quarter: 2008Q2

REPORT INFORMATION
  Report Type: 
  Country: None (occurrence: None)
  Receive Date: 20080520
  Receipt Date: 20080520
  Transmission Date: 20081010
  Serious: No
  Sender: FDA-Public Use
  Company Number: None

PATIENT
  Age: 61 Year
  Sex: Male
  Weight: 104.3273 kg

DRUGS (1)
  1. UROXATRAL [Suspect]
     Indication: URINARY RETENTION
     Dosage: ONE TABLET DAILY BUCCAL
     Route: 002
     Dates: start: 20080415, end: 20080518

REACTIONS (3)
  - ARTHRALGIA [None]
  - BACK PAIN [None]
  - BONE PAIN [None]
